FAERS Safety Report 5606523-1 (Version None)
Quarter: 2008Q1

REPORT INFORMATION
  Report Type: 
  Country: None (occurrence: None)
  Receive Date: 20080129
  Receipt Date: 20080122
  Transmission Date: 20080703
  Serious: Yes (Life-Threatening, Hospitalization)
  Sender: FDA-Public Use
  Company Number: B0504374A

PATIENT
  Age: 51 Year
  Sex: Female

DRUGS (7)
  1. EPIVIR [Suspect]
     Indication: HIV INFECTION
     Dosage: 150MG TWICE PER DAY
     Route: 048
     Dates: end: 20070903
  2. VIREAD [Suspect]
     Indication: HIV INFECTION
     Dosage: 300MG PER DAY
     Route: 048
     Dates: start: 20070827, end: 20070903
  3. KALETRA [Suspect]
     Indication: HIV INFECTION
     Dosage: 5ML TWICE PER DAY
     Route: 048
     Dates: end: 20070903
  4. GLUCOPHAGE [Suspect]
     Route: 048
     Dates: start: 20030101, end: 20070903
  5. ACTOS [Suspect]
     Dosage: 30MG PER DAY
     Route: 048
     Dates: start: 20030101, end: 20070903
  6. BACTRIM [Concomitant]
     Indication: PROPHYLAXIS
     Dosage: 800MG PER DAY
     Route: 048
     Dates: start: 20030101, end: 20070903
  7. RAMIPRIL [Concomitant]
     Indication: HYPERTENSION
     Dosage: 5MG PER DAY
     Route: 048
     Dates: start: 20030101, end: 20070903

REACTIONS (7)
  - ANURIA [None]
  - DEHYDRATION [None]
  - DIARRHOEA [None]
  - DRUG INTERACTION [None]
  - HYPERKALAEMIA [None]
  - LACTIC ACIDOSIS [None]
  - RENAL FAILURE ACUTE [None]
